FAERS Safety Report 6677153-8 (Version None)
Quarter: 2010Q2

REPORT INFORMATION
  Report Type: 
  Country: None (occurrence: None)
  Receive Date: 20100412
  Receipt Date: 20100330
  Transmission Date: 20101027
  Serious: Yes (Hospitalization)
  Sender: FDA-Public Use
  Company Number: IE-MEDIMMUNE-MEDI-0010633

PATIENT
  Sex: Male

DRUGS (3)
  1. SYNAGIS [Suspect]
     Indication: RESPIRATORY SYNCYTIAL VIRUS INFECTION
     Route: 058
     Dates: start: 20091110
  2. SYNAGIS [Suspect]
     Route: 058
     Dates: start: 20100225, end: 20100225
  3. PROPRANOLOL [Concomitant]

REACTIONS (1)
  - ANGIOPLASTY [None]
